FAERS Safety Report 5604563-X (Version None)
Quarter: 2008Q1

REPORT INFORMATION
  Report Type: 
  Country: None (occurrence: None)
  Receive Date: 20080128
  Receipt Date: 20080118
  Transmission Date: 20080703
  Serious: Yes (Death, Hospitalization, Other)
  Sender: FDA-Public Use
  Company Number: US-MERCK-0701USA00575

PATIENT
  Age: 55 Year
  Sex: Female

DRUGS (9)
  1. FOSAMAX [Suspect]
     Indication: OSTEOPOROSIS
     Route: 048
  2. FOSAMAX [Suspect]
     Route: 048
  3. FOSAMAX [Suspect]
     Route: 048
     Dates: end: 20011201
  4. CELEXA [Concomitant]
     Indication: DEPRESSION
     Route: 065
  5. COUMADIN [Concomitant]
     Route: 065
  6. COUMADIN [Concomitant]
     Route: 065
  7. DITROPAN [Concomitant]
     Route: 065
  8. RITALIN [Concomitant]
     Route: 065
  9. PRILOSEC [Concomitant]
     Route: 065

REACTIONS (11)
  - DEATH [None]
  - DRUG INEFFECTIVE [None]
  - FALL [None]
  - FIBULA FRACTURE [None]
  - GASTROOESOPHAGEAL REFLUX DISEASE [None]
  - HIATUS HERNIA [None]
  - MUSCULOSKELETAL PAIN [None]
  - OSTEOMYELITIS [None]
  - OSTEONECROSIS [None]
  - TACHYCARDIA PAROXYSMAL [None]
  - TIBIA FRACTURE [None]
